FAERS Safety Report 8690789 (Version 2)
Quarter: 2013Q4

REPORT INFORMATION
  Report Type: Spontaneous
  Country: JP (occurrence: JP)
  Receive Date: 20120728
  Receipt Date: 20131107
  Transmission Date: 20140711
  Serious: Yes (Death)
  Sender: FDA-Public Use
  Company Number: JP-MSD-1206USA02882

PATIENT
  Sex: Male
  Weight: .91 kg

DRUGS (1)
  1. INDACIN I.V. [Suspect]
     Route: 042

REACTIONS (2)
  - Hepatic rupture [Fatal]
  - Shock haemorrhagic [Fatal]
